FAERS Safety Report 12564181 (Version 1)
Quarter: 2016Q3

REPORT INFORMATION
  Report Type: Spontaneous
  Country: AU (occurrence: AU)
  Receive Date: 20160718
  Receipt Date: 20160718
  Transmission Date: 20161109
  Serious: Yes (Hospitalization)
  Sender: FDA-Public Use
  Company Number: AU-DEPOMED, INC.-AU-2016DEP011483

PATIENT
  Age: 23 Year
  Sex: Female
  Weight: 52 kg

DRUGS (6)
  1. ROPIVACAINE [Suspect]
     Active Substance: ROPIVACAINE
     Indication: INDUCTION OF ANAESTHESIA
     Dosage: 200 MG DILUTED IN 200 ML NORMAL SALINE, 3.85 MG/KG
  2. FENTANYL CITRATE. [Suspect]
     Active Substance: FENTANYL CITRATE
     Indication: SEDATIVE THERAPY
     Dosage: UNK, BOLUS
  3. MIDAZOLAM [Suspect]
     Active Substance: MIDAZOLAM\MIDAZOLAM HYDROCHLORIDE
     Indication: SEDATION
     Dosage: UNK, BOLUS
  4. ADRENALINE                         /00003901/ [Concomitant]
     Active Substance: EPINEPHRINE
     Indication: INDUCTION OF ANAESTHESIA
     Dosage: 1 MG DILUTED IN 200 ML NORMAL SALINE
  5. DEXMEDETOMIDINE. [Suspect]
     Active Substance: DEXMEDETOMIDINE
     Indication: SEDATIVE THERAPY
     Dosage: UNK, BOLUS
  6. PROPOFOL. [Suspect]
     Active Substance: PROPOFOL
     Indication: SEDATIVE THERAPY
     Dosage: UNK, BOLUS

REACTIONS (7)
  - Vaginal haemorrhage [Unknown]
  - Toxicity to various agents [Recovered/Resolved]
  - Generalised tonic-clonic seizure [Recovered/Resolved]
  - Hypertonia [Recovered/Resolved]
  - Exposure during pregnancy [Unknown]
  - Depressed level of consciousness [Recovered/Resolved]
  - Partial seizures [Recovered/Resolved]
